FAERS Safety Report 18245165 (Version 1)
Quarter: 2020Q3

REPORT INFORMATION
  Report Type: Spontaneous
  Country: DK (occurrence: DK)
  Receive Date: 20200908
  Receipt Date: 20200908
  Transmission Date: 20201103
  Serious: Yes (Other)
  Sender: FDA-Public Use
  Company Number: DK-ROCHE-2670568

PATIENT
  Age: 66 Year
  Sex: Female
  Weight: 67.8 kg

DRUGS (8)
  1. METOPROLOL. [Concomitant]
     Active Substance: METOPROLOL
     Dosage: 1+0+1/2+0
     Dates: start: 20190930
  2. EMEDASTINE [Concomitant]
     Active Substance: EMEDASTINE
     Dosage: 1X2, 0.5 MG/ML
     Dates: start: 20200616
  3. TECENTRIQ [Suspect]
     Active Substance: ATEZOLIZUMAB
     Indication: LUNG NEOPLASM MALIGNANT
     Route: 042
     Dates: start: 20200722
  4. RAMIPRIL. [Concomitant]
     Active Substance: RAMIPRIL
     Dosage: 1X2
     Dates: start: 20200116
  5. SPIRONOLACTON [Concomitant]
     Active Substance: SPIRONOLACTONE
     Dosage: 1X1
     Dates: start: 20200103
  6. CLEMASTINE [Concomitant]
     Active Substance: CLEMASTINE
  7. NACL [Concomitant]
     Active Substance: SODIUM CHLORIDE
  8. EDOXABAN [Concomitant]
     Active Substance: EDOXABAN TOSYLATE
     Dosage: 1X1
     Dates: start: 20190930

REACTIONS (1)
  - Back pain [Recovered/Resolved]

NARRATIVE: CASE EVENT DATE: 20200812
